FAERS Safety Report 15269419 (Version 2)
Quarter: 2018Q3

REPORT INFORMATION
  Report Type: Report from Study
  Country: BR (occurrence: BR)
  Receive Date: 20180813
  Receipt Date: 20180911
  Transmission Date: 20181010
  Serious: No
  Sender: FDA-Public Use
  Company Number: BR-EMD SERONO-E2B_90054498

PATIENT
  Age: 46 Year
  Sex: Female

DRUGS (6)
  1. SIMVASTATIN. [Concomitant]
     Active Substance: SIMVASTATIN
     Indication: BLOOD CHOLESTEROL
     Dosage: 1 (UNSPECIFIED UNITS)
  2. REBIF [Suspect]
     Active Substance: INTERFERON BETA-1A
     Indication: MULTIPLE SCLEROSIS RELAPSE
     Route: 058
     Dates: start: 20160916
  3. REBIF [Suspect]
     Active Substance: INTERFERON BETA-1A
     Dosage: DOSE INCREASED TO FULL DOSE
     Route: 058
     Dates: start: 20170306
  4. RIFAMPICIN [Concomitant]
     Active Substance: RIFAMPIN
     Indication: TUBERCULOSIS
     Dates: start: 20160905, end: 20170304
  5. REBIF [Suspect]
     Active Substance: INTERFERON BETA-1A
     Dosage: RESTARTED AT HALF DOSE USING REBICLIP FOR ADMINISTRATION OF HALF AMPOULE ACCORDING TO THE MEDICAL IN
     Route: 058
     Dates: start: 20161125
  6. ALENIA                             /01479302/ [Concomitant]
     Indication: BRONCHIECTASIS

REACTIONS (7)
  - Wound [Unknown]
  - Acarodermatitis [Recovering/Resolving]
  - Pruritus generalised [Not Recovered/Not Resolved]
  - Injection site pruritus [Not Recovered/Not Resolved]
  - Hypertrichosis [Unknown]
  - Musculoskeletal stiffness [Recovered/Resolved]
  - Alopecia [Not Recovered/Not Resolved]

NARRATIVE: CASE EVENT DATE: 201609
